FAERS Safety Report 6956141-8 (Version None)
Quarter: 2010Q3

REPORT INFORMATION
  Report Type: 
  Country: None (occurrence: None)
  Receive Date: 20100830
  Receipt Date: 20100531
  Transmission Date: 20110219
  Serious: Yes (Other)
  Sender: FDA-Public Use
  Company Number: PHHY2010FR43356

PATIENT
  Age: 67 Year
  Sex: Female

DRUGS (2)
  1. CARTEOLOL HYDROCHLORIDE [Suspect]
     Indication: INTRAOCULAR PRESSURE INCREASED
     Dosage: 1 GTT, QD
     Route: 047
     Dates: start: 20100521, end: 20100526
  2. PRAVASTATIN [Concomitant]
     Dosage: UNK

REACTIONS (2)
  - DERMATITIS BULLOUS [None]
  - OROPHARYNGEAL BLISTERING [None]
